FAERS Safety Report 5871353-2 (Version None)
Quarter: 2008Q3

REPORT INFORMATION
  Report Type: 
  Country: None (occurrence: None)
  Receive Date: 20080904
  Receipt Date: 20080904
  Transmission Date: 20090109
  Serious: Yes (Hospitalization)
  Sender: FDA-Public Use
  Company Number: None

PATIENT
  Age: 57 Year
  Sex: Male
  Weight: 54.8852 kg

DRUGS (1)
  1. PREVACID [Suspect]
     Dosage: ONE TWICE DAILY
     Dates: start: 20010101, end: 20080101

REACTIONS (3)
  - ARTHRALGIA [None]
  - BONE PAIN [None]
  - MUSCULOSKELETAL CHEST PAIN [None]
